FAERS Safety Report 22293391 (Version 1)
Quarter: 2023Q2

REPORT INFORMATION
  Report Type: Spontaneous
  Country: US (occurrence: US)
  Receive Date: 20230508
  Receipt Date: 20230508
  Transmission Date: 20230722
  Serious: Yes (Hospitalization)
  Sender: FDA-Public Use
  Company Number: US-PADAGIS-2023PAD00658

PATIENT

DRUGS (5)
  1. IBUPROFEN [Suspect]
     Active Substance: IBUPROFEN
     Indication: Abdominal pain
     Dosage: UNK
     Route: 065
  2. IBUPROFEN [Suspect]
     Active Substance: IBUPROFEN
     Indication: Back pain
  3. METOPROLOL [Concomitant]
     Active Substance: METOPROLOL
     Indication: Hypertension
     Dosage: 25 MG (EVERY 12 HOUR)
     Route: 065
  4. NIFEDIPINE EXTENDED RELEASE TABLETS (III) [Concomitant]
     Indication: Hypertension
     Dosage: 60 MG (EVERY 12 HOURS)
     Route: 065
  5. DOXAZOSIN [Concomitant]
     Active Substance: DOXAZOSIN MESYLATE
     Indication: Benign prostatic hyperplasia
     Dosage: 1 MG (AT BED TIME)
     Route: 065

REACTIONS (2)
  - Therapy partial responder [Unknown]
  - Product used for unknown indication [Unknown]
